FAERS Safety Report 7113388-8 (Version None)
Quarter: 2010Q4

REPORT INFORMATION
  Report Type: 
  Country: None (occurrence: None)
  Receive Date: 20101119
  Receipt Date: 20101110
  Transmission Date: 20110411
  Serious: Yes (Hospitalization)
  Sender: FDA-Public Use
  Company Number: BR-ASTRAZENECA-2010SE53885

PATIENT
  Age: 27 Year
  Sex: Male

DRUGS (4)
  1. SEROQUEL [Suspect]
     Indication: SCHIZOPHRENIA
     Dosage: THREE TIMES A DAY
     Route: 048
  2. SEROQUEL [Suspect]
     Dosage: FOUR TABLETS
     Route: 048
  3. DIAZEPAM [Concomitant]
     Dosage: FOUR TABLETS
  4. DIAZEPAM [Concomitant]

REACTIONS (3)
  - OVERDOSE [None]
  - RESTLESSNESS [None]
  - SUICIDE ATTEMPT [None]
